FAERS Safety Report 9777131 (Version 3)
Quarter: 2014Q1

REPORT INFORMATION
  Report Type: Spontaneous
  Country: JP (occurrence: JP)
  Receive Date: 20131221
  Receipt Date: 20140120
  Transmission Date: 20141002
  Serious: Yes (Death)
  Sender: FDA-Public Use
  Company Number: JP-ROCHE-1319730

PATIENT
  Age: 93 Year
  Sex: Female
  Weight: 42 kg

DRUGS (9)
  1. MIRCERA [Suspect]
     Indication: NEPHROGENIC ANAEMIA
     Route: 058
     Dates: start: 20130322, end: 20130510
  2. MIRCERA [Suspect]
     Indication: NEPHROGENIC ANAEMIA
     Dosage: SINGLE DOSE ADMINISTRATION
     Route: 058
     Dates: start: 20130607, end: 20130607
  3. MIRCERA [Suspect]
     Indication: NEPHROGENIC ANAEMIA
     Route: 058
     Dates: start: 20130712, end: 20131105
  4. LASIX [Concomitant]
     Route: 048
  5. RENIVACE [Concomitant]
     Route: 048
  6. TENORMIN [Concomitant]
     Route: 048
  7. OPALMON [Concomitant]
     Route: 048
  8. PURSENNID [Concomitant]
     Route: 048
  9. DEPAS [Concomitant]
     Route: 048

REACTIONS (3)
  - Cerebral infarction [Fatal]
  - Eating disorder [Fatal]
  - Dehydration [Fatal]
